FAERS Safety Report 20279925 (Version 4)
Quarter: 2022Q2

REPORT INFORMATION
  Report Type: Report from Study
  Country: US (occurrence: US)
  Receive Date: 20220103
  Receipt Date: 20220401
  Transmission Date: 20220721
  Serious: Yes (Life-Threatening, Other)
  Sender: FDA-Public Use
  Company Number: US-GILEAD-2021-0563543

PATIENT
  Age: 69 Year
  Sex: Male
  Weight: 78.6 kg

DRUGS (17)
  1. REMDESIVIR [Suspect]
     Active Substance: REMDESIVIR
     Indication: COVID-19
     Dosage: 100 MG, ONCE
     Route: 042
     Dates: start: 20211207, end: 20211207
  2. REMDESIVIR [Suspect]
     Active Substance: REMDESIVIR
     Dosage: 200 MG, QD PRIOR TO STUDY ENROLLMENT
     Route: 042
     Dates: start: 20211204, end: 20211206
  3. CYCLOSPORINE [Suspect]
     Active Substance: CYCLOSPORINE
     Indication: COVID-19
     Dosage: 200 MG, QD
     Route: 048
     Dates: start: 20211207, end: 20211207
  4. DEXAMETHASONE [Concomitant]
     Active Substance: DEXAMETHASONE
     Dosage: 8 MG, QD PRIOR TO STUDY ENROLLMENT
     Route: 042
  5. HEPARIN SODIUM, PORCINE [Concomitant]
     Active Substance: HEPARIN SODIUM
     Dosage: 25000 UNIT/250 ML
     Route: 042
     Dates: start: 20211204
  6. OMEPRAZOLE [Concomitant]
     Active Substance: OMEPRAZOLE
     Dosage: 40 MG, QD
     Route: 042
     Dates: start: 20211204
  7. PROVENTIL [Concomitant]
     Active Substance: ALBUTEROL
     Dosage: 2.5 MG/0.5ML
     Dates: start: 20211204
  8. BARICITINIB [Concomitant]
     Active Substance: BARICITINIB
     Dosage: 2 MG, QD
     Route: 048
     Dates: start: 20211206
  9. READYPREP CHG [Concomitant]
     Active Substance: CHLORHEXIDINE GLUCONATE
     Dosage: 2 %, QD
     Route: 061
     Dates: start: 20211214
  10. CISATRACURIUM [Concomitant]
     Active Substance: CISATRACURIUM
     Dosage: 400 MG
     Route: 042
     Dates: start: 20211212
  11. FENTANYL [Concomitant]
     Active Substance: FENTANYL
     Dosage: 10 MCG/ML CONTINUOUS
     Route: 042
     Dates: start: 20211212
  12. HUMULIN R [Concomitant]
     Active Substance: INSULIN HUMAN
     Dosage: 4 UNITS, TID
     Route: 042
     Dates: start: 20211208
  13. MIDAZOLAM [Concomitant]
     Active Substance: MIDAZOLAM
     Dosage: 1 MG/ML CONTINUOUS
     Route: 042
     Dates: start: 20211213
  14. NOREPINEPHRINE [Concomitant]
     Active Substance: NOREPINEPHRINE
     Dosage: 16 MG/250 ML CONTINUOUS
     Route: 042
     Dates: start: 20211210
  15. DIPRIVAN [Concomitant]
     Active Substance: PROPOFOL
     Dosage: 1000 MG/100 ML CONTINUOUS
     Route: 042
     Dates: start: 20211210
  16. VASOPRESSIN [Concomitant]
     Active Substance: VASOPRESSIN
     Dosage: 60 UNITS IN D5WW 100 ML CONTINUOUS
     Route: 042
     Dates: start: 20211213
  17. ZOSYN [Concomitant]
     Active Substance: PIPERACILLIN SODIUM\TAZOBACTAM SODIUM
     Dosage: 3.375 G, TID
     Route: 042
     Dates: start: 20211213

REACTIONS (1)
  - Multiple organ dysfunction syndrome [Not Recovered/Not Resolved]

NARRATIVE: CASE EVENT DATE: 20211215
